FAERS Safety Report 4684314-6 (Version None)
Quarter: 2005Q2

REPORT INFORMATION
  Report Type: 
  Country: None (occurrence: None)
  Receive Date: 20050531
  Receipt Date: 20040708
  Transmission Date: 20051028
  Serious: Yes (Other)
  Sender: FDA-Public Use
  Company Number: 200415161US

PATIENT
  Sex: 0

DRUGS (2)
  1. LOVENOX [Suspect]
     Dosage: 100 MG BID SC
     Route: 058
  2. WARFARIN SODIUM [Concomitant]

REACTIONS (2)
  - ALANINE AMINOTRANSFERASE INCREASED [None]
  - LIVER FUNCTION TEST ABNORMAL [None]
